FAERS Safety Report 4436276-4 (Version None)
Quarter: 2004Q3

REPORT INFORMATION
  Report Type: 
  Country: None (occurrence: None)
  Receive Date: 20040830
  Receipt Date: 20040622
  Transmission Date: 20050211
  Serious: Yes (Hospitalization)
  Sender: FDA-Public Use
  Company Number: US-BRISTOL-MYERS SQUIBB COMPANY-12623245

PATIENT
  Age: 49 Year
  Sex: Female

DRUGS (3)
  1. ERBITUX [Suspect]
     Indication: COLORECTAL CANCER
     Route: 042
     Dates: start: 20040621, end: 20040621
  2. BENADRYL [Concomitant]
     Indication: PREMEDICATION
     Route: 042
     Dates: start: 20040621, end: 20040621
  3. CIMETIDINE [Concomitant]
     Indication: PREMEDICATION
     Route: 042
     Dates: start: 20040621, end: 20040621

REACTIONS (1)
  - INFUSION RELATED REACTION [None]
